FAERS Safety Report 4609377-5 (Version None)
Quarter: 2005Q2

REPORT INFORMATION
  Report Type: 
  Country: None (occurrence: None)
  Receive Date: 20050301
  Receipt Date: 20050113
  Transmission Date: 20051028
  Serious: Yes (Hospitalization)
  Sender: FDA-Public Use
  Company Number: WAES 0501USA01736

PATIENT

DRUGS (1)
  1. ZETIA [Suspect]
     Dosage: 10 MG PO
     Route: 048

REACTIONS (1)
  - PANCREATITIS [None]
